FAERS Safety Report 7717507 (Version 2)
Quarter: 2015Q2

REPORT INFORMATION
  Report Type: Spontaneous
  Country: US (occurrence: US)
  Receive Date: 20101217
  Receipt Date: 20150520
  Transmission Date: 20150821
  Serious: Yes (Disabling, Other)
  Sender: FDA-Public Use
  Company Number: US-ELI_LILLY_AND_COMPANY-US201012002675

PATIENT
  Sex: Male

DRUGS (2)
  1. HUMALOG [Suspect]
     Active Substance: INSULIN LISPRO
     Indication: DIABETES MELLITUS
     Dosage: 30 U, OTHER
     Dates: start: 1984
  2. LEVEMIR [Concomitant]
     Active Substance: INSULIN DETEMIR
     Dosage: UNK, 2/D

REACTIONS (5)
  - Blood glucose increased [Unknown]
  - Neuropathy peripheral [Unknown]
  - Macular degeneration [Not Recovered/Not Resolved]
  - Diabetic complication [Unknown]
  - Visual acuity reduced [Not Recovered/Not Resolved]
